FAERS Safety Report 25647912 (Version 3)
Quarter: 2025Q4

REPORT INFORMATION
  Report Type: Report from Study
  Country: JP (occurrence: JP)
  Receive Date: 20250806
  Receipt Date: 20251127
  Transmission Date: 20260117
  Serious: Yes (Hospitalization)
  Sender: MITSUBISHI TANABE PHARMA
  Company Number: JP-MTPC-MTPC2025-0013990

PATIENT
  Age: 64 Year
  Sex: Male

DRUGS (10)
  1. RADICAVA ORS [Suspect]
     Active Substance: EDARAVONE
     Indication: Amyotrophic lateral sclerosis
     Dosage: 105 MILLIGRAM, QD
     Route: 048
     Dates: start: 20250117, end: 20250130
  2. RADICAVA ORS [Suspect]
     Active Substance: EDARAVONE
     Indication: Amyotrophic lateral sclerosis
     Dosage: 105 MILLIGRAM, QD
     Route: 048
     Dates: start: 20250117, end: 20250130
  3. RADICAVA ORS [Suspect]
     Active Substance: EDARAVONE
     Dosage: 105 MILLIGRAM, QD
     Route: 048
     Dates: start: 20250221, end: 20250302
  4. RADICAVA ORS [Suspect]
     Active Substance: EDARAVONE
     Dosage: 105 MILLIGRAM, QD
     Route: 048
     Dates: start: 20250221, end: 20250302
  5. RILUZOLE [Suspect]
     Active Substance: RILUZOLE
     Indication: Amyotrophic lateral sclerosis
     Dosage: 100 MILLIGRAM, QD
     Route: 065
     Dates: start: 20250110, end: 20250321
  6. ABILIFY [Concomitant]
     Active Substance: ARIPIPRAZOLE
     Indication: Amyotrophic lateral sclerosis
     Dosage: 3 MILLIGRAM, QD
     Route: 048
     Dates: start: 20250221, end: 20250321
  7. Bilanoa od [Concomitant]
     Indication: Amyotrophic lateral sclerosis
     Dosage: 20 MILLIGRAM, QD
     Route: 048
     Dates: start: 20250221, end: 20250323
  8. CYMBALTA [Concomitant]
     Active Substance: DULOXETINE HYDROCHLORIDE
     Indication: Amyotrophic lateral sclerosis
     Dosage: 40 MILLIGRAM, QD
     Route: 048
     Dates: start: 20250221, end: 20250321
  9. METHYLCOBALAMIN [Concomitant]
     Active Substance: METHYLCOBALAMIN
     Indication: Amyotrophic lateral sclerosis
     Route: 030
  10. ZYPREXA [Concomitant]
     Active Substance: OLANZAPINE
     Indication: Amyotrophic lateral sclerosis
     Dosage: 2.5 MILLIGRAM, QD
     Route: 048
     Dates: start: 20250221, end: 20250321

REACTIONS (1)
  - Interstitial lung disease [Recovering/Resolving]

NARRATIVE: CASE EVENT DATE: 20250321
